FAERS Safety Report 19410626 (Version 3)
Quarter: 2022Q1

REPORT INFORMATION
  Report Type: Spontaneous
  Country: IT (occurrence: IT)
  Receive Date: 20210614
  Receipt Date: 20220131
  Transmission Date: 20220423
  Serious: Yes (Other)
  Sender: FDA-Public Use
  Company Number: IT-HBP-2021IT022185

PATIENT
  Sex: Female
  Weight: 99 kg

DRUGS (29)
  1. NETUPITANT\PALONOSETRON HYDROCHLORIDE [Suspect]
     Active Substance: NETUPITANT\PALONOSETRON HYDROCHLORIDE
     Indication: HER2 positive breast cancer
     Dosage: 300.5 MILLIGRAM, Q3WK
     Route: 042
     Dates: start: 20181128, end: 20190130
  2. METHOTREXATE [Suspect]
     Active Substance: METHOTREXATE
     Indication: HER2 positive breast cancer
     Dosage: 5 MILLIGRAM, UNKNOWN, ON 11-DEC-2019 RECEIVED THE MOSTRECENT DOSE PRIOR TO THE EVENT
     Route: 048
     Dates: start: 20191030, end: 20191127
  3. DOCETAXEL [Suspect]
     Active Substance: DOCETAXEL
     Indication: HER2 positive breast cancer
     Dosage: 150 MILLIGRAM, Q3WK
     Route: 042
     Dates: start: 20170424, end: 20170816
  4. VINORELBINE [Suspect]
     Active Substance: VINORELBINE TARTRATE
     Indication: HER2 positive breast cancer
     Dosage: 50 MILLIGRAM, UNKNOWN, ON 02-MAR-2019 RECEIVED THE MOST RECENT DOSE PRIOR TO THE EVENT
     Route: 042
     Dates: start: 20190307, end: 20190404
  5. EPIRUBICIN [Suspect]
     Active Substance: EPIRUBICIN
     Indication: HER2 positive breast cancer
     Dosage: 130 MILLIGRAM, Q3WK
     Route: 042
     Dates: start: 20181128, end: 20190130
  6. CARBOPLATIN [Suspect]
     Active Substance: CARBOPLATIN
     Indication: HER2 positive breast cancer
     Dosage: 600 MILLIGRAM, Q3WK, ON 28-JUL-2020 RECEIVED THE MOST RECENT DOSE PRIOR TO THE EVENT
     Route: 042
     Dates: start: 20200422, end: 20200422
  7. TRASTUZUMAB [Suspect]
     Active Substance: TRASTUZUMAB
     Indication: HER2 positive breast cancer
     Dosage: 816 MILLIGRAM, Q3WK, ON 27-SEP-2017 RECEIVED THE MOST RECENT DOSE PRIOR TO THE EVENT
     Route: 042
     Dates: start: 20170424
  8. TRASTUZUMAB [Suspect]
     Active Substance: TRASTUZUMAB
     Dosage: 840 MILLIGRAM, Q3WK, ON 09-JUN-2020 RECEIVED THE MOST RECENT DOSE PRIOR TO THE EVENT
     Route: 042
     Dates: start: 20190307
  9. TRASTUZUMAB [Suspect]
     Active Substance: TRASTUZUMAB
     Dosage: 30 MILLIGRAM, Q3WK
     Route: 042
     Dates: start: 20190404, end: 20200422
  10. TRASTUZUMAB [Suspect]
     Active Substance: TRASTUZUMAB
     Dosage: 480 MILLIGRAM, Q3WK
     Route: 042
     Dates: start: 20200609, end: 20201118
  11. PERTUZUMAB [Suspect]
     Active Substance: PERTUZUMAB
     Indication: HER2 positive breast cancer
     Dosage: 840 MILLIGRAM, UNKNOWN, ON 24-MAY-2017 HE RECEIVED THE MOST RECENT DOSE PRIOR TO THE EVENT
     Route: 042
     Dates: start: 20170424
  12. ADO-TRASTUZUMAB EMTANSINE [Suspect]
     Active Substance: ADO-TRASTUZUMAB EMTANSINE
     Indication: HER2 positive breast cancer
     Dosage: 75 MILLIGRAM, Q3WK, ON 26-SEP-2018 RECEIVED THE MOST RECENT DOSE PRIOR TO THE EVENT
     Route: 058
     Dates: start: 20180905
  13. CYCLOPHOSPHAMIDE [Suspect]
     Active Substance: CYCLOPHOSPHAMIDE
     Indication: HER2 positive breast cancer
     Dosage: 130 MILLIGRAM, Q3WK, ON 30-JAN-2019 RECEIVED THE MOST RECENT DOSE OF CYCLOPHOSPHAMIDE
     Route: 042
     Dates: start: 20181128
  14. CYCLOPHOSPHAMIDE [Suspect]
     Active Substance: CYCLOPHOSPHAMIDE
     Dosage: 25 MILLIGRAM, QD
     Route: 042
     Dates: start: 20191030
  15. CAPECITABINE [Suspect]
     Active Substance: CAPECITABINE
     Indication: HER2 positive breast cancer
     Dosage: 4000 MILLIGRAM, QD
     Route: 048
     Dates: start: 20180521, end: 20180904
  16. ERIBULIN MESYLATE [Suspect]
     Active Substance: ERIBULIN MESYLATE
     Indication: HER2 positive breast cancer
     Dosage: 2 MILLIGRAM, UNKNOWN
     Route: 042
     Dates: start: 20201127
  17. LAPATINIB [Suspect]
     Active Substance: LAPATINIB
     Indication: HER2 positive breast cancer
     Dosage: 1250 MILLIGRAM, QD
     Route: 048
     Dates: start: 20180511, end: 20180904
  18. PREDNISONE [Concomitant]
     Active Substance: PREDNISONE
     Dosage: UNK, UNKNOWN
     Route: 065
  19. CHLORPHENIRAMINE MALEATE [Concomitant]
     Active Substance: CHLORPHENIRAMINE MALEATE
     Dosage: UNK, UNKNOWN
     Route: 065
  20. PALONOSETRON [Concomitant]
     Active Substance: PALONOSETRON
     Dosage: UNK, UNKNOWN
     Route: 065
  21. PREDNISONE [Concomitant]
     Active Substance: PREDNISONE
     Dosage: UNK, UNKNOWN
     Route: 065
     Dates: start: 20200722
  22. ESOMEPRAZOLE [Concomitant]
     Active Substance: ESOMEPRAZOLE
     Dosage: UNK, UNKNOWN
     Route: 065
     Dates: start: 20200129
  23. GRANISETRON [Concomitant]
     Active Substance: GRANISETRON
     Dosage: UNK, UNKNOWN
     Route: 065
  24. RANITIDINE [Concomitant]
     Active Substance: RANITIDINE
     Dosage: UNK, UNKNOWN
     Route: 065
  25. DEXAMETHASONE PHOSPHATE [Concomitant]
     Active Substance: DEXAMETHASONE PHOSPHATE
     Dosage: UNK, UNKNOWN
     Route: 065
  26. RAMIPRIL [Concomitant]
     Active Substance: RAMIPRIL
     Dosage: UNK, UNKNOWN
     Route: 065
     Dates: start: 20190909
  27. LORATADINE [Concomitant]
     Active Substance: LORATADINE
     Dosage: UNK, UNKNOWN
     Route: 065
     Dates: start: 20190816
  28. METOCLOPRAMIDE [Concomitant]
     Active Substance: METOCLOPRAMIDE
     Dosage: UNK, UNKNOWN
     Route: 065
     Dates: start: 20200401
  29. VENLAFAXINA                        /01233801/ [Concomitant]
     Dosage: UNK, UNKNOWN
     Route: 065

REACTIONS (2)
  - Neutropenia [Recovering/Resolving]
  - Off label use [Unknown]

NARRATIVE: CASE EVENT DATE: 20181128
